FAERS Safety Report 6400481-8 (Version None)
Quarter: 2009Q4

REPORT INFORMATION
  Report Type: 
  Country: None (occurrence: None)
  Receive Date: 20091007
  Receipt Date: 20091007
  Transmission Date: 20100525
  Serious: Yes (Other)
  Sender: FDA-Public Use
  Company Number: None

PATIENT
  Sex: Female
  Weight: 74.8435 kg

DRUGS (1)
  1. CLONIDINE [Suspect]
     Indication: HYPERTENSION
     Dosage: 1 PATCH WEEKLY TRANSDERMAL
     Route: 062
     Dates: start: 20090928, end: 20091006

REACTIONS (10)
  - APPLICATION SITE PRURITUS [None]
  - BLOOD PRESSURE INCREASED [None]
  - CONDITION AGGRAVATED [None]
  - DRUG INEFFECTIVE [None]
  - ECONOMIC PROBLEM [None]
  - PRODUCT ADHESION ISSUE [None]
  - PRODUCT FORMULATION ISSUE [None]
  - PRODUCT MEASURED POTENCY ISSUE [None]
  - PRODUCT SIZE ISSUE [None]
  - PRODUCT SUBSTITUTION ISSUE [None]
